FAERS Safety Report 14254804 (Version 2)
Quarter: 2017Q4

REPORT INFORMATION
  Report Type: Spontaneous
  Country: SI (occurrence: SI)
  Receive Date: 20171206
  Receipt Date: 20171225
  Transmission Date: 20180321
  Serious: Yes (Hospitalization)
  Sender: FDA-Public Use
  Company Number: PHHY2017SI180313

PATIENT
  Age: 79 Year
  Sex: Female
  Weight: 80.8 kg

DRUGS (2)
  1. EDEMID [Suspect]
     Active Substance: FUROSEMIDE
     Indication: CARDIAC FAILURE
     Dosage: 40 MG, QD
     Route: 048
     Dates: start: 20171005
  2. EDEMID [Suspect]
     Active Substance: FUROSEMIDE
     Dosage: 1 DF, QD (INCREASED DOSE)
     Route: 048
     Dates: start: 20171106, end: 20171120

REACTIONS (5)
  - Acute kidney injury [Recovering/Resolving]
  - Bacterial infection [Recovered/Resolved]
  - Vomiting [Recovering/Resolving]
  - Weight decreased [Recovering/Resolving]
  - Cardiac failure [Recovering/Resolving]

NARRATIVE: CASE EVENT DATE: 20171104
